FAERS Safety Report 21247279 (Version 1)
Quarter: 2022Q3

REPORT INFORMATION
  Report Type: Spontaneous
  Country: JP (occurrence: JP)
  Receive Date: 20220824
  Receipt Date: 20220824
  Transmission Date: 20221027
  Serious: Yes (Hospitalization, Other)
  Sender: FDA-Public Use
  Company Number: JP-Accord-274494

PATIENT
  Age: 37 Year
  Sex: Female

DRUGS (3)
  1. ETOPOSIDE [Suspect]
     Active Substance: ETOPOSIDE
     Indication: Neoplasm malignant
     Dosage: 100 MG/BODY EVERY 3 WEEKS FROM DAY 1 TO 5
  2. METHOTREXATE [Suspect]
     Active Substance: METHOTREXATE
     Indication: Neoplasm malignant
     Dosage: 450 MG/BODY EVERY 3 WEEKS ON DAY 1
  3. ACTINOMYCIN D [Suspect]
     Active Substance: DACTINOMYCIN
     Indication: Neoplasm malignant
     Dosage: 0.5  MG/BODY EVERY 3 WEEKS FROM DAY 1 TO 5

REACTIONS (1)
  - Cellulitis [Recovering/Resolving]
